FAERS Safety Report 16728349 (Version 1)
Quarter: 2019Q3

REPORT INFORMATION
  Report Type: Spontaneous
  Country: US (occurrence: US)
  Receive Date: 20190822
  Receipt Date: 20190822
  Transmission Date: 20191005
  Serious: No
  Sender: FDA-Public Use
  Company Number: US-TEVA-2019-US-1094642

PATIENT
  Sex: Male

DRUGS (1)
  1. ESTAZOLAM. [Suspect]
     Active Substance: ESTAZOLAM
     Indication: INSOMNIA
     Dosage: 3 MILLIGRAM DAILY; 2 AND HALF PILLS IN THE NIGHT?DIAMOND, DARK PINK, SCORED/WATSON/745
     Route: 065

REACTIONS (1)
  - Drug ineffective [Unknown]
